FAERS Safety Report 7197657-1 (Version None)
Quarter: 2010Q4

REPORT INFORMATION
  Report Type: 
  Country: None (occurrence: None)
  Receive Date: 20101227
  Receipt Date: 20101216
  Transmission Date: 20110411
  Serious: Yes (Other)
  Sender: FDA-Public Use
  Company Number: JP-ALLERGAN-1012851US

PATIENT
  Age: 54 Year
  Sex: Female

DRUGS (4)
  1. BOTOX INJECTION 100 [Suspect]
     Indication: TORTICOLLIS
     Dosage: 230 UNITS, SINGLE
     Route: 030
     Dates: start: 20090519, end: 20090519
  2. BOTOX INJECTION 100 [Suspect]
     Dosage: 60 UNITS, SINGLE
     Route: 030
     Dates: start: 20080828, end: 20080828
  3. BOTOX INJECTION 100 [Suspect]
     Dosage: 150 UNITS, SINGLE
     Route: 030
     Dates: start: 20081125, end: 20081125
  4. BOTOX INJECTION 100 [Suspect]
     Dosage: 180 UNITS, SINGLE
     Route: 030
     Dates: start: 20090219, end: 20090219

REACTIONS (1)
  - LARGE INTESTINE CARCINOMA [None]
